FAERS Safety Report 7954320-4 (Version None)
Quarter: 2011Q4

REPORT INFORMATION
  Report Type: 
  Country: None (occurrence: None)
  Receive Date: 20111129
  Receipt Date: 20111121
  Transmission Date: 20120403
  Serious: Yes (Other)
  Sender: FDA-Public Use
  Company Number: 1000025687

PATIENT
  Age: 35 Year
  Sex: Female

DRUGS (1)
  1. VIIBRYD [Suspect]
     Indication: POSTPARTUM DEPRESSION
     Dosage: 10 MG (10 MG, 1 IN 1 D), ORAL
     Route: 048
     Dates: start: 20111101, end: 20111101

REACTIONS (6)
  - OFF LABEL USE [None]
  - MUSCLE TWITCHING [None]
  - FEELING ABNORMAL [None]
  - TARDIVE DYSKINESIA [None]
  - TREMOR [None]
  - PARKINSONIAN REST TREMOR [None]
